FAERS Safety Report 5006097-2 (Version None)
Quarter: 2006Q1

REPORT INFORMATION
  Report Type: 
  Country: None (occurrence: None)
  Receive Date: 20060328
  Receipt Date: 20060312
  Transmission Date: 20060701
  Serious: Yes (Hospitalization)
  Sender: FDA-Public Use
  Company Number: 06P-163-0324679-00

PATIENT
  Age: 74 Year
  Sex: Male
  Weight: 72.1219 kg

DRUGS (16)
  1. HUMIRA [Suspect]
     Indication: RHEUMATOID ARTHRITIS
     Dosage: 40 MG, 1 IN 2 WK, SUBCUTANEOUS
     Route: 058
     Dates: start: 20040901
  2. TRAZODONE HCL [Concomitant]
  3. FOLIC ACID [Concomitant]
  4. PREDNISONE [Concomitant]
  5. DONEPEZIL HYDROCHLORIDE [Concomitant]
  6. LISINOPRIL [Concomitant]
  7. TERAZOSIN HYDROCHLORIDE [Concomitant]
  8. PROPANOLOL HYDROCHLORIDE [Concomitant]
  9. HYDROCHLOROTHIAZIDE [Concomitant]
  10. CLONIDINE [Concomitant]
  11. SERETIDE MITE [Concomitant]
  12. ASPIRIN [Concomitant]
  13. CYANOCOBALAMIN [Concomitant]
  14. AMLODIPINE BESYLATE [Concomitant]
  15. LEKOVIT CA [Concomitant]
  16. MULTIVITAMIN [Concomitant]

REACTIONS (4)
  - BLOOD PRESSURE INCREASED [None]
  - CHEST PAIN [None]
  - HEADACHE [None]
  - HEART RATE IRREGULAR [None]
